FAERS Safety Report 8888628 (Version 2)
Quarter: 2012Q4

REPORT INFORMATION
  Report Type: 
  Country: FR (occurrence: FR)
  Receive Date: 20121106
  Receipt Date: 20121129
  Transmission Date: 20130627
  Serious: Yes (Death)
  Sender: FDA-Public Use
  Company Number: FR-ROCHE-1151225

PATIENT
  Age: 72 Year
  Sex: Female

DRUGS (17)
  1. MABTHERA [Suspect]
     Indication: BURKITT^S LYMPHOMA
     Route: 042
     Dates: start: 20121006, end: 20121006
  2. ELDISINE [Suspect]
     Indication: BURKITT^S LYMPHOMA
     Route: 042
     Dates: start: 20120924, end: 20120924
  3. ENDOXAN [Suspect]
     Indication: BURKITT^S LYMPHOMA
     Route: 042
  4. ENDOXAN [Suspect]
     Route: 065
     Dates: start: 20120924
  5. ENDOXAN [Suspect]
     Route: 065
     Dates: start: 20121008
  6. ENDOXAN [Suspect]
     Route: 065
     Dates: start: 20121009
  7. VINCRISTINE SULFATE [Suspect]
     Indication: BURKITT^S LYMPHOMA
     Route: 042
     Dates: start: 20121007, end: 20121007
  8. METHOTREXATE [Suspect]
     Indication: BURKITT^S LYMPHOMA
     Route: 037
     Dates: start: 20121008, end: 20121008
  9. ADRIBLASTINE [Suspect]
     Indication: BURKITT^S LYMPHOMA
     Route: 042
     Dates: start: 20121008, end: 20121008
  10. CORTANCYL [Concomitant]
     Route: 048
  11. METHYLPREDNISOLONE [Concomitant]
     Route: 037
     Dates: start: 20121008, end: 20121008
  12. FORTUM [Concomitant]
  13. AMIKLIN [Concomitant]
  14. VANCOMYCINE [Concomitant]
  15. CANCIDAS [Concomitant]
  16. TIENAM [Concomitant]
  17. GENTAMYCIN [Concomitant]

REACTIONS (3)
  - Cerebral haemorrhage [Fatal]
  - Bone marrow failure [Fatal]
  - Acinetobacter bacteraemia [Fatal]
